FAERS Safety Report 5910943-5 (Version None)
Quarter: 2008Q4

REPORT INFORMATION
  Report Type: 
  Country: None (occurrence: None)
  Receive Date: 20081007
  Receipt Date: 20080716
  Transmission Date: 20090506
  Serious: No
  Sender: FDA-Public Use
  Company Number: US-ASTRAZENECA-2008UW14224

PATIENT
  Age: 61 Year
  Sex: Female
  Weight: 55.3 kg

DRUGS (7)
  1. ARIMIDEX [Suspect]
     Indication: BREAST CANCER
     Route: 048
     Dates: start: 20070301
  2. ARIMIDEX [Suspect]
     Route: 048
     Dates: start: 20080501
  3. PREDNISONE [Concomitant]
  4. METHOTREXATE [Concomitant]
  5. FOLIC ACID [Concomitant]
  6. ZOMETA [Concomitant]
  7. LISINOPRIL [Concomitant]

REACTIONS (4)
  - BACK PAIN [None]
  - HYPOAESTHESIA [None]
  - OEDEMA PERIPHERAL [None]
  - OSTEOPOROSIS [None]
